FAERS Safety Report 6105503-X (Version None)
Quarter: 2009Q1

REPORT INFORMATION
  Report Type: 
  Country: None (occurrence: None)
  Receive Date: 20090306
  Receipt Date: 20090227
  Transmission Date: 20090719
  Serious: Yes (Hospitalization)
  Sender: FDA-Public Use
  Company Number: A0771654A

PATIENT
  Age: 58 Year
  Sex: Male
  Weight: 147.7 kg

DRUGS (15)
  1. AVANDIA [Suspect]
     Indication: DIABETES MELLITUS
     Dosage: 8MG PER DAY
     Route: 048
     Dates: start: 20000419, end: 20070604
  2. GLUCOPHAGE [Concomitant]
  3. METFORMIN [Concomitant]
  4. GLUCOTROL [Concomitant]
  5. TOPROL-XL [Concomitant]
  6. LIPITOR [Concomitant]
  7. XANAX [Concomitant]
  8. COLCHICIN [Concomitant]
  9. SINGULAIR [Concomitant]
  10. OXYCONTIN [Concomitant]
  11. VIAGRA [Concomitant]
  12. PERCOCET [Concomitant]
  13. VERELAN [Concomitant]
  14. COMBIVENT [Concomitant]
  15. ALTACE [Concomitant]

REACTIONS (4)
  - ATRIAL FIBRILLATION [None]
  - CARDIAC FAILURE CONGESTIVE [None]
  - CORONARY ARTERY DISEASE [None]
  - VENTRICULAR TACHYCARDIA [None]
